FAERS Safety Report 6105609-5 (Version None)
Quarter: 2009Q1

REPORT INFORMATION
  Report Type: 
  Country: None (occurrence: None)
  Receive Date: 20090304
  Receipt Date: 20090304
  Transmission Date: 20090719
  Serious: Yes (Other)
  Sender: FDA-Public Use
  Company Number: None

PATIENT
  Sex: Female
  Weight: 124.7392 kg

DRUGS (1)
  1. SEROQUEL [Suspect]

REACTIONS (7)
  - CORONARY ARTERY DISEASE [None]
  - DRUG EFFECT DECREASED [None]
  - FATIGUE [None]
  - PROTEINURIA [None]
  - RENAL DISORDER [None]
  - TYPE 2 DIABETES MELLITUS [None]
  - VISUAL ACUITY REDUCED [None]
